FAERS Safety Report 13897037 (Version 1)
Quarter: 2017Q3

REPORT INFORMATION
  Report Type: Spontaneous
  Country: US (occurrence: None)
  Receive Date: 20170822
  Receipt Date: 20170822
  Transmission Date: 20171127
  Serious: No
  Sender: FDA-Public Use
  Company Number: None

PATIENT
  Age: 62 Year
  Sex: Male

DRUGS (3)
  1. WELLBUTRIN [Concomitant]
     Active Substance: BUPROPION HYDROCHLORIDE
  2. SULFAMETHOXAZOLE/TRIMETHOPRIM DS [Suspect]
     Active Substance: SULFAMETHOXAZOLE\TRIMETHOPRIM
     Indication: PROSTATITIS
     Dates: start: 20150114, end: 20150119
  3. AMOXICILLIN/CLAVULANATE [Concomitant]
     Active Substance: AMOXICILLIN\CLAVULANATE POTASSIUM

REACTIONS (7)
  - Dyspepsia [None]
  - Chills [None]
  - Nausea [None]
  - Hyperhidrosis [None]
  - Drug-induced liver injury [None]
  - Cholelithiasis [None]
  - Pyrexia [None]

NARRATIVE: CASE EVENT DATE: 20150121
